FAERS Safety Report 9204680 (Version 1)
Quarter: 2013Q1

REPORT INFORMATION
  Report Type: Spontaneous
  Country: US (occurrence: None)
  Receive Date: 20130329
  Receipt Date: 20130329
  Transmission Date: 20140127
  Serious: Yes (Other)
  Sender: FDA-Public Use
  Company Number: 2013P1003276

PATIENT
  Age: 55 Year
  Sex: Female
  Weight: 71.67 kg

DRUGS (1)
  1. AZO STANDARD [Suspect]
     Indication: URINARY TRACT INFECTION
     Dosage: 2 TABLETS X1;PO
     Route: 048
     Dates: start: 20130309, end: 20130309

REACTIONS (6)
  - Hypersensitivity [None]
  - Pharyngeal oedema [None]
  - Pruritus [None]
  - Urticaria [None]
  - Headache [None]
  - Erythema [None]
